FAERS Safety Report 23810986 (Version 1)
Quarter: 2024Q2

REPORT INFORMATION
  Report Type: Spontaneous
  Country: CA (occurrence: CA)
  Receive Date: 20240502
  Receipt Date: 20240502
  Transmission Date: 20240716
  Serious: Yes (Hospitalization)
  Sender: FDA-Public Use
  Company Number: CA-WOODWARD-2024-CA-002354

PATIENT
  Age: 61 Year
  Sex: Female

DRUGS (18)
  1. RABEPRAZOLE SODIUM [Suspect]
     Active Substance: RABEPRAZOLE SODIUM
     Indication: Product used for unknown indication
     Dosage: 20.0 MILLIGRAM(S) (20 MILLIGRAM(S), 1 IN 1 DAY)
     Route: 048
  2. MELOXICAM [Suspect]
     Active Substance: MELOXICAM
     Dosage: DOSE AND FREQUENCY UNKNOWN
  3. METHYLPREDNISOLONE ACETATE [Suspect]
     Active Substance: METHYLPREDNISOLONE ACETATE
     Dosage: DOSE AND FREQUENCY UNKNOWN
  4. ORENCIA [Suspect]
     Active Substance: ABATACEPT
     Dosage: DOSE AND FREQUENCY UNKNOWN
  5. SIMPONI [Suspect]
     Active Substance: GOLIMUMAB
     Dosage: DOSE AND FREQUENCY UNKNOWN
     Route: 058
  6. SULFASALAZINE [Suspect]
     Active Substance: SULFASALAZINE
     Dosage: DOSE AND FREQUENCY UNKNOWN
  7. TYLENOL [Suspect]
     Active Substance: ACETAMINOPHEN
     Dosage: DOSE AND FREQUENCY UNKNOWN
     Route: 048
  8. XELJANZ [Suspect]
     Active Substance: TOFACITINIB CITRATE
     Dosage: 10.0 MILLIGRAM(S) (5 MILLIGRAM(S), 1 IN 12 HOUR)
     Route: 048
  9. UPADACITINIB [Suspect]
     Active Substance: UPADACITINIB
  10. CIMZIA [Suspect]
     Active Substance: CERTOLIZUMAB PEGOL
     Dosage: DOSE AND FREQUENCY UNKNOWN
  11. ACTEMRA [Suspect]
     Active Substance: TOCILIZUMAB
     Dosage: DOSE AND FREQUENCY UNKNOWN
  12. BARICITINIB [Suspect]
     Active Substance: BARICITINIB
     Dosage: DOSE AND FREQUENCY UNKNOWN
  13. CANDESARTAN [Suspect]
     Active Substance: CANDESARTAN
     Dosage: 8.0 MILLIGRAM(S) (8 MILLIGRAM(S), 1 IN 1 DAY)
  14. CELEBREX [Suspect]
     Active Substance: CELECOXIB
     Dosage: 400.0 MILLIGRAM(S) (200 MILLIGRAM(S), 1 IN 12 HOUR)
  15. DESOXIMETASONE [Suspect]
     Active Substance: DESOXIMETASONE
     Dosage: DOSE AND FREQUENCY UNKNOWN
  16. DYMISTA [Suspect]
     Active Substance: AZELASTINE HYDROCHLORIDE\FLUTICASONE PROPIONATE
     Dosage: SPRAY, METERED DOSE (DOSE AND FREQUENCY UNKNOWN)
  17. ERELZI [Suspect]
     Active Substance: ETANERCEPT-SZZS
     Dosage: DOSE AND FREQUENCY UNKNOWN
  18. LIFITEGRAST [Suspect]
     Active Substance: LIFITEGRAST
     Dosage: DOSE AND FREQUENCY UNKNOWN

REACTIONS (5)
  - Arthritis [Unknown]
  - Blood folate decreased [Unknown]
  - Drug ineffective [Unknown]
  - Platelet count decreased [Unknown]
  - Pneumonia [Unknown]
